FAERS Safety Report 6354655-5 (Version None)
Quarter: 2009Q3

REPORT INFORMATION
  Report Type: 
  Country: None (occurrence: None)
  Receive Date: 20090909
  Receipt Date: 20090827
  Transmission Date: 20100115
  Serious: Yes (Other)
  Sender: FDA-Public Use
  Company Number: LTI2009A00238

PATIENT
  Age: 50 Year
  Sex: Female

DRUGS (11)
  1. ACTOS [Suspect]
     Indication: TYPE 2 DIABETES MELLITUS
     Dosage: 30 MG (30 MG, 1 IN 1 D), ORAL
     Route: 048
     Dates: start: 20060101
  2. GLUCOPHAGE [Concomitant]
  3. XELEVIA (SITAGLIPTINE) (ORAL ANTIDIABETIS) [Concomitant]
  4. PRAVADUAL  (PARAVASTATIN, ACETYLSALICYLIC ACID) [Concomitant]
  5. LEVOTHYROXINE SODIUM [Concomitant]
  6. TARKA [Concomitant]
  7. TOPALGIC (TRAMADOL HYDROCHLORIDE) [Concomitant]
  8. XANAX [Concomitant]
  9. PAROXETINE HYDROCHLORIDE [Concomitant]
  10. CARTREX (ACECLOFENAC) [Concomitant]
  11. VOLTAREN [Concomitant]

REACTIONS (4)
  - COMPRESSION FRACTURE [None]
  - ERYTHEMA [None]
  - PAIN [None]
  - TIBIA FRACTURE [None]
